FAERS Safety Report 7270941-9 (Version None)
Quarter: 2011Q1

REPORT INFORMATION
  Report Type: 
  Country: None (occurrence: None)
  Receive Date: 20110121
  Receipt Date: 20110121
  Transmission Date: 20110831
  Serious: Yes (Other)
  Sender: FDA-Public Use
  Company Number: None

PATIENT
  Age: 56 Year
  Sex: Female
  Weight: 48 kg

DRUGS (1)
  1. CEFEPIME [Suspect]
     Indication: LUNG INFECTION PSEUDOMONAL
     Dosage: 2GM Q12H IV BOLUS
     Route: 040
     Dates: start: 20110113, end: 20110119

REACTIONS (3)
  - INFUSION RELATED REACTION [None]
  - CHEST PAIN [None]
  - HYPERHIDROSIS [None]
